FAERS Safety Report 16893394 (Version 6)
Quarter: 2020Q3

REPORT INFORMATION
  Report Type: Report from Study
  Country: UG (occurrence: UG)
  Receive Date: 20191008
  Receipt Date: 20200908
  Transmission Date: 20201102
  Serious: Yes (Hospitalization, Other)
  Sender: FDA-Public Use
  Company Number: UG-VIIV HEALTHCARE LIMITED-UG2019GSK180298

PATIENT
  Age: 16 Year
  Sex: Male
  Weight: 60.5 kg

DRUGS (4)
  1. 3TC [Suspect]
     Active Substance: LAMIVUDINE
     Dosage: UNK
     Dates: start: 20170608
  2. COTRIMOXAZOLE [Suspect]
     Active Substance: SULFAMETHOXAZOLE\TRIMETHOPRIM
     Dosage: UNK
     Dates: start: 20170505
  3. TENOFOVIR DISOPROXIL FUMARATE. [Suspect]
     Active Substance: TENOFOVIR DISOPROXIL FUMARATE
     Dosage: UNK
     Dates: start: 20170608
  4. DOLUTEGRAVIR [Suspect]
     Active Substance: DOLUTEGRAVIR
     Indication: HIV INFECTION
     Dosage: UNK
     Dates: start: 20170608

REACTIONS (2)
  - Plasmodium falciparum infection [Recovered/Resolved]
  - Plasmodium falciparum infection [Recovered/Resolved]

NARRATIVE: CASE EVENT DATE: 20190922
